FAERS Safety Report 7436065-2 (Version None)
Quarter: 2011Q2

REPORT INFORMATION
  Report Type: 
  Country: None (occurrence: None)
  Receive Date: 20110425
  Receipt Date: 20080916
  Transmission Date: 20111010
  Serious: Yes (Other)
  Sender: FDA-Public Use
  Company Number: DE-GENENTECH-317029

PATIENT
  Age: 83 Year
  Sex: Female

DRUGS (2)
  1. LUCENTIS [Suspect]
     Indication: MACULAR DEGENERATION
     Route: 031
  2. NASONEX [Concomitant]
     Indication: SEASONAL ALLERGY

REACTIONS (14)
  - SPINAL CORD DISORDER [None]
  - EYE INFLAMMATION [None]
  - NASOPHARYNGITIS [None]
  - DRUG INTOLERANCE [None]
  - OROPHARYNGEAL PAIN [None]
  - VISUAL ACUITY REDUCED [None]
  - GENERAL PHYSICAL HEALTH DETERIORATION [None]
  - CARDIAC DISORDER [None]
  - BONE DISORDER [None]
  - INTRAOCULAR PRESSURE INCREASED [None]
  - SINUSITIS [None]
  - EYE PRURITUS [None]
  - HYPERSENSITIVITY [None]
  - EYE IRRITATION [None]
